FAERS Safety Report 9834019 (Version 1)
Quarter: 2014Q1

REPORT INFORMATION
  Report Type: Spontaneous
  Country: US (occurrence: US)
  Receive Date: 20140122
  Receipt Date: 20140122
  Transmission Date: 20141002
  Serious: No
  Sender: FDA-Public Use
  Company Number: US-JNJFOC-20140104197

PATIENT
  Sex: Male
  Weight: 108.41 kg

DRUGS (4)
  1. DURAGESIC [Suspect]
     Indication: BACK PAIN
     Route: 062
     Dates: start: 2013
  2. DURAGESIC [Suspect]
     Indication: BACK PAIN
     Dosage: STARTED ABOUT 2 MONTHS AGO ON AN UNSPECIFIED DATE IN 2013
     Route: 062
     Dates: start: 2013, end: 2013
  3. OXYCONTIN [Concomitant]
     Indication: BACK PAIN
     Route: 048
     Dates: start: 2008
  4. OXYCODONE [Concomitant]
     Indication: BACK PAIN
     Route: 048
     Dates: start: 2010

REACTIONS (9)
  - Pain [Not Recovered/Not Resolved]
  - Product adhesion issue [Unknown]
  - Product quality issue [Unknown]
  - Drug ineffective [Unknown]
  - Poor quality drug administered [Unknown]
  - Product quality issue [Unknown]
  - Wrong technique in drug usage process [Unknown]
  - Wrong technique in drug usage process [Unknown]
  - Product quality issue [Unknown]
